FAERS Safety Report 14544775 (Version 2)
Quarter: 2018Q1

REPORT INFORMATION
  Report Type: Spontaneous
  Country: IT (occurrence: IT)
  Receive Date: 20180217
  Receipt Date: 20180223
  Transmission Date: 20180509
  Serious: Yes (Death, Life-Threatening, Hospitalization, Other)
  Sender: FDA-Public Use
  Company Number: IT-AUROBINDO-AUR-APL-2018-005971

PATIENT
  Age: 52 Year
  Sex: Male

DRUGS (7)
  1. METHYLPREDNISOLONE. [Suspect]
     Active Substance: METHYLPREDNISOLONE
     Indication: IMMUNOSUPPRESSION
     Dosage: ()
     Route: 065
     Dates: start: 2011
  2. OXYGEN. [Suspect]
     Active Substance: OXYGEN
     Indication: LIVER ABSCESS
     Dosage: HYPERBARIC OXYGEN ()
  3. MYCOPHENOLATE [Suspect]
     Active Substance: MYCOPHENOLIC ACID
     Indication: IMMUNOSUPPRESSION
     Dosage: ()
     Route: 065
     Dates: start: 2011
  4. GENTAMICIN. [Suspect]
     Active Substance: GENTAMICIN
     Indication: LIVER ABSCESS
     Dosage: ()
  5. CYCLOSPORIN [Suspect]
     Active Substance: CYCLOSPORINE
     Indication: IMMUNOSUPPRESSION
     Dosage: ()
     Route: 065
     Dates: start: 2011
  6. MEROPENEM. [Suspect]
     Active Substance: MEROPENEM
     Indication: LIVER ABSCESS
     Dosage: ()
  7. COLISTIN [Suspect]
     Active Substance: COLISTIN
     Indication: LIVER ABSCESS
     Dosage: ()

REACTIONS (5)
  - Peritonitis [Fatal]
  - Klebsiella infection [Fatal]
  - Septic shock [Fatal]
  - Liver abscess [Fatal]
  - Drug ineffective [Unknown]

NARRATIVE: CASE EVENT DATE: 2011
